FAERS Safety Report 25636995 (Version 1)
Quarter: 2025Q3

REPORT INFORMATION
  Report Type: Spontaneous
  Country: CA (occurrence: CA)
  Receive Date: 20250804
  Receipt Date: 20250804
  Transmission Date: 20251020
  Serious: Yes (Hospitalization)
  Sender: ROCHE
  Company Number: CA-002147023-NVSC2025CA120045

PATIENT
  Age: 37 Year
  Sex: Male

DRUGS (1)
  1. XOLAIR [Suspect]
     Active Substance: OMALIZUMAB
     Indication: Chronic spontaneous urticaria
     Dosage: 300 MG, Q4W
     Route: 058

REACTIONS (7)
  - Coordination abnormal [Unknown]
  - Delusion [Unknown]
  - Eye movement disorder [Unknown]
  - Eye pain [Unknown]
  - Paranoia [Unknown]
  - Schizophrenia [Unknown]
  - Suicidal ideation [Unknown]
